FAERS Safety Report 7067486-8 (Version None)
Quarter: 2010Q4

REPORT INFORMATION
  Report Type: 
  Country: None (occurrence: None)
  Receive Date: 20101005
  Receipt Date: 20100923
  Transmission Date: 20110411
  Serious: Yes (Other)
  Sender: FDA-Public Use
  Company Number: AEUSA201000370

PATIENT
  Age: 70 Year
  Sex: Male

DRUGS (10)
  1. GAMUNEX [Suspect]
     Dosage: 30 GM; QD; IV
     Route: 042
     Dates: start: 20100920, end: 20100921
  2. GAMUNEX [Suspect]
  3. VITAMIN D [Concomitant]
  4. VITAMIN B12 NOS [Concomitant]
  5. LISINOPRIL [Concomitant]
  6. ADVAIR DISKUS 100/50 [Concomitant]
  7. FISH OIL [Concomitant]
  8. NEURONTIN [Concomitant]
  9. HYDROCHLOROTHIAZIDE [Concomitant]
  10. MULTIVITAMIN /05027001/ [Concomitant]

REACTIONS (3)
  - BLOOD CREATININE INCREASED [None]
  - BLOOD UREA INCREASED [None]
  - RENAL FAILURE [None]
